FAERS Safety Report 12267937 (Version 1)
Quarter: 2016Q2

REPORT INFORMATION
  Report Type: Spontaneous
  Country: US (occurrence: US)
  Receive Date: 20160414
  Receipt Date: 20160414
  Transmission Date: 20160815
  Serious: No
  Sender: FDA-Public Use
  Company Number: US-ENDO PHARMACEUTICALS INC.-2016-000559

PATIENT
  Age: 55 Year
  Sex: Female
  Weight: 88.53 kg

DRUGS (1)
  1. OXYCODONE/ACETAMINOPHEN TABLETS 10MG/325MG [Suspect]
     Active Substance: ACETAMINOPHEN\OXYCODONE HYDROCHLORIDE
     Indication: ARTHRALGIA
     Dosage: 40/1300MG
     Route: 048
     Dates: start: 20160115, end: 20160117

REACTIONS (3)
  - Furuncle [Not Recovered/Not Resolved]
  - Fungal skin infection [Not Recovered/Not Resolved]
  - Hypersensitivity [Not Recovered/Not Resolved]

NARRATIVE: CASE EVENT DATE: 201601
